FAERS Safety Report 15749439 (Version 5)
Quarter: 2019Q2

REPORT INFORMATION
  Report Type: Spontaneous
  Country: US (occurrence: US)
  Receive Date: 20181221
  Receipt Date: 20190403
  Transmission Date: 20190711
  Serious: No
  Sender: FDA-Public Use
  Company Number: US-PFIZER INC-2018523275

PATIENT
  Age: 69 Year
  Sex: Male
  Weight: 120.2 kg

DRUGS (2)
  1. SOMAVERT [Suspect]
     Active Substance: PEGVISOMANT
     Indication: BLOOD GROWTH HORMONE INCREASED
     Dosage: 10 MG, DAILY
     Route: 058
     Dates: start: 20181114
  2. SOMAVERT [Suspect]
     Active Substance: PEGVISOMANT
     Indication: ACROMEGALY
     Dosage: 15 MG, DAILY
     Route: 058
     Dates: start: 20190108

REACTIONS (16)
  - Flatulence [Not Recovered/Not Resolved]
  - Night sweats [Unknown]
  - Blood pressure diastolic decreased [Unknown]
  - Therapeutic response unexpected [Unknown]
  - Pre-existing condition improved [Unknown]
  - Dyspnoea exertional [Unknown]
  - Asthenia [Unknown]
  - Upper respiratory tract infection [Recovering/Resolving]
  - Dysphagia [Recovered/Resolved]
  - Throat irritation [Unknown]
  - Pain [Not Recovered/Not Resolved]
  - Disease recurrence [Unknown]
  - Blood pressure increased [Unknown]
  - Headache [Unknown]
  - Productive cough [Recovering/Resolving]
  - Oedema peripheral [Unknown]

NARRATIVE: CASE EVENT DATE: 2018
